FAERS Safety Report 7712835-8 (Version None)
Quarter: 2011Q3

REPORT INFORMATION
  Report Type: 
  Country: None (occurrence: None)
  Receive Date: 20110826
  Receipt Date: 20110818
  Transmission Date: 20111222
  Serious: Yes (Other)
  Sender: FDA-Public Use
  Company Number: PHFR2011GB00567

PATIENT
  Sex: Male

DRUGS (3)
  1. CLOZAPINE [Suspect]
     Indication: SCHIZOPHRENIA
     Route: 048
     Dates: start: 20081014, end: 20110531
  2. INTERFERON [Suspect]
     Indication: HEPATITIS C
     Dosage: UNK
     Dates: end: 20110601
  3. CLOZAPINE [Suspect]
     Dosage: 100 MG/DAY
     Route: 048
     Dates: start: 20110804

REACTIONS (4)
  - HEPATITIS C [None]
  - WHITE BLOOD CELL COUNT DECREASED [None]
  - LYMPHOCYTE COUNT DECREASED [None]
  - NEUTROPHIL COUNT DECREASED [None]
